FAERS Safety Report 17261552 (Version 1)
Quarter: 2020Q1

REPORT INFORMATION
  Report Type: Spontaneous
  Country: NL (occurrence: NL)
  Receive Date: 20200113
  Receipt Date: 20200113
  Transmission Date: 20200409
  Serious: Yes (Disabling)
  Sender: FDA-Public Use
  Company Number: NL-TEVA-2020-NL-1167006

PATIENT
  Age: 47 Year
  Sex: Female
  Weight: 86 kg

DRUGS (8)
  1. SUMATRIPTAN. [Concomitant]
     Active Substance: SUMATRIPTAN
     Dosage: 50 MG IF NECESSARY
  2. SLOW K [Concomitant]
     Active Substance: POTASSIUM CHLORIDE
     Dosage: 600 MG
  3. NOVORAPID (INSULINE ASPART) [Concomitant]
     Dosage: PUMP 21 UNITS PER DAY
  4. PANTOPRAZOL [Concomitant]
     Active Substance: PANTOPRAZOLE SODIUM
     Dosage: GASTRO-RESISTANT TABLET, 40 MG (MILLIGRAMS)
  5. ATENOLOL. [Suspect]
     Active Substance: ATENOLOL
     Indication: ARRHYTHMIA
     Dosage: 112 MG PER DAY, 75 MG, ONCE A DAY, 1.5 ...
     Dates: start: 2009
  6. MAGNESIUMHYDROXIDE [Concomitant]
     Dosage: CHEWABLE TABLET, 724 MG (MILLIGRAMS) ...
  7. ELIQUIS [Concomitant]
     Active Substance: APIXABAN
     Dosage: TABLET, 5 MG (MILLIGRAM)
  8. PANCREASE (AMYLASE/LIPASE/PROTEASE) [Concomitant]
     Dosage: 1 DOSAGE FORM, GASTRO-RESISTANT CAPSULE, 22500/25000/1250 FEB.

REACTIONS (5)
  - Skin discolouration [Not Recovered/Not Resolved]
  - Myalgia [Not Recovered/Not Resolved]
  - Skin atrophy [Not Recovered/Not Resolved]
  - Restless legs syndrome [Not Recovered/Not Resolved]
  - Pain of skin [Not Recovered/Not Resolved]

NARRATIVE: CASE EVENT DATE: 20100122
